FAERS Safety Report 8847469 (Version 1)
Quarter: 2012Q4

REPORT INFORMATION
  Report Type: 
  Country: US (occurrence: US)
  Receive Date: 20121018
  Receipt Date: 20121018
  Transmission Date: 20130627
  Serious: No
  Sender: FDA-Public Use
  Company Number: US-ASTRAZENECA-2012SE77080

PATIENT
  Age: 76 Year
  Sex: Female
  Weight: 80.7 kg

DRUGS (7)
  1. VIMOVO [Suspect]
     Indication: PAIN
     Route: 048
  2. DIVON [Concomitant]
  3. SIMVASTATIN [Concomitant]
  4. LORAZEPAM [Concomitant]
  5. IRON [Concomitant]
  6. OMEPRAZOLE [Concomitant]
  7. ASA (ON OCCASION) [Concomitant]

REACTIONS (2)
  - Night sweats [Unknown]
  - Chills [Unknown]
